FAERS Safety Report 6464042-7 (Version None)
Quarter: 2009Q4

REPORT INFORMATION
  Report Type: 
  Country: None (occurrence: None)
  Receive Date: 20091110
  Receipt Date: 20091013
  Transmission Date: 20100525
  Serious: No
  Sender: FDA-Public Use
  Company Number: 1000009439

PATIENT
  Age: 39 Year
  Sex: Female

DRUGS (4)
  1. SAVELLA [Suspect]
     Indication: MIGRAINE
     Dosage: 12.5 MG (12.5 MG, 1 IN 1 D), ORAL; 25 MG (12.5 MG, 2 IN 1 ),ORAL; 50 MG (25 MG, 2 IN 1 D),ORAL
     Route: 048
     Dates: start: 20091004, end: 20091004
  2. SAVELLA [Suspect]
     Indication: MIGRAINE
     Dosage: 12.5 MG (12.5 MG, 1 IN 1 D), ORAL; 25 MG (12.5 MG, 2 IN 1 ),ORAL; 50 MG (25 MG, 2 IN 1 D),ORAL
     Route: 048
     Dates: start: 20091005, end: 20091006
  3. SAVELLA [Suspect]
     Indication: MIGRAINE
     Dosage: 12.5 MG (12.5 MG, 1 IN 1 D), ORAL; 25 MG (12.5 MG, 2 IN 1 ),ORAL; 50 MG (25 MG, 2 IN 1 D),ORAL
     Route: 048
     Dates: start: 20091007, end: 20091010
  4. SAVELLA [Suspect]
     Indication: MIGRAINE
     Dosage: 100 MG (50 MG, 2 IN 1 D),ORAL
     Route: 048
     Dates: start: 20091011, end: 20091018

REACTIONS (3)
  - ANXIETY [None]
  - INSOMNIA [None]
  - NAUSEA [None]
